FAERS Safety Report 9480455 (Version 1)
Quarter: 2013Q3

REPORT INFORMATION
  Report Type: Spontaneous
  Country: US (occurrence: US)
  Receive Date: 20130828
  Receipt Date: 20130828
  Transmission Date: 20140515
  Serious: Yes (Hospitalization, Other)
  Sender: FDA-Public Use
  Company Number: US-AMGEN-KDL108176

PATIENT
  Age: 55 Year
  Sex: Female

DRUGS (2)
  1. ENBREL [Suspect]
     Indication: RHEUMATOID ARTHRITIS
     Dosage: 25 MG, 2 TIMES/WK
     Route: 058
     Dates: start: 20010131
  2. METHOTREXATE [Concomitant]

REACTIONS (5)
  - Coronary artery disease [Unknown]
  - Pericarditis [Unknown]
  - Hypertension [Unknown]
  - Glaucoma [Unknown]
  - Condition aggravated [Unknown]
